FAERS Safety Report 9281758 (Version 2)
Quarter: 2013Q4

REPORT INFORMATION
  Report Type: Spontaneous
  Country: US (occurrence: US)
  Receive Date: 20130510
  Receipt Date: 20131011
  Transmission Date: 20140711
  Serious: Yes (Hospitalization)
  Sender: FDA-Public Use
  Company Number: US-B.I. PHARMACEUTICALS,INC./RIDGEFIELD-2013-BI-13013BP

PATIENT
  Age: 52 Year
  Sex: Female
  Weight: 77.11 kg

DRUGS (17)
  1. PRADAXA [Suspect]
     Indication: ANTICOAGULANT THERAPY
     Dosage: 300 MG
     Dates: start: 201109
  2. PRADAXA [Suspect]
     Indication: ATRIAL FIBRILLATION
  3. METOPROLOL [Concomitant]
     Dosage: 50 MG
  4. SEROQUEL [Concomitant]
  5. VERELAN [Concomitant]
  6. ROPINIROLE [Concomitant]
  7. NEXIUM [Concomitant]
  8. HYDROCHLOROTHIAZIDE [Concomitant]
     Dosage: 25 MG
  9. LEXAPRO [Concomitant]
     Dosage: 30 MG
  10. XANAX [Concomitant]
     Dosage: 1.5 MG
  11. PREDNISONE [Concomitant]
     Dosage: 20 MG
  12. SIMVASTATIN [Concomitant]
     Dosage: 20 MG
  13. VANCOMYCIN [Concomitant]
     Indication: ABSCESS
  14. RIFAMPIN [Concomitant]
     Indication: ABSCESS
  15. ALBUTEROL [Concomitant]
  16. REVATIO [Concomitant]
  17. PROPRANOLOL [Concomitant]

REACTIONS (2)
  - Gastrointestinal haemorrhage [Unknown]
  - Anaemia [Unknown]
